FAERS Safety Report 5444860-4 (Version None)
Quarter: 2007Q3

REPORT INFORMATION
  Report Type: 
  Country: None (occurrence: None)
  Receive Date: 20070904
  Receipt Date: 20070904
  Transmission Date: 20080115
  Serious: Yes (Death)
  Sender: FDA-Public Use
  Company Number: None

PATIENT
  Age: 51 Year
  Sex: Female
  Weight: 97.977 kg

DRUGS (4)
  1. CETUXIMAB [Suspect]
     Indication: BREAST CANCER METASTATIC
     Dosage: WEEKLY IV
     Route: 042
  2. CARBOPLATIN [Suspect]
     Dosage: WEEKLY IV
     Route: 042
  3. DURAGESIC-100 [Concomitant]
  4. MORPHINE [Concomitant]

REACTIONS (2)
  - MYOCARDIAL INFARCTION [None]
  - SUDDEN DEATH [None]
